FAERS Safety Report 7484151-3 (Version None)
Quarter: 2011Q2

REPORT INFORMATION
  Report Type: 
  Country: None (occurrence: None)
  Receive Date: 20110517
  Receipt Date: 20110504
  Transmission Date: 20111010
  Serious: Yes (Hospitalization)
  Sender: FDA-Public Use
  Company Number: BR-ELI_LILLY_AND_COMPANY-BR201105001374

PATIENT
  Sex: Female
  Weight: 90 kg

DRUGS (5)
  1. DAFLON [Concomitant]
     Indication: VARICOSE VEIN
     Dosage: UNK, QD
     Route: 048
  2. GLUCOSAMINE SULFATE [Concomitant]
     Indication: OSTEOARTHRITIS
     Dosage: UNK, QD
     Route: 048
  3. NATRILIX [Concomitant]
     Indication: DIURETIC THERAPY
     Dosage: 10 MG, QD
     Route: 048
  4. CYMBALTA [Suspect]
     Indication: ANXIETY
     Dosage: 60 MG, QD
     Route: 048
     Dates: start: 20110301
  5. DIOVAN [Concomitant]
     Indication: BLOOD PRESSURE MANAGEMENT
     Dosage: 80 MG, QD
     Route: 048
     Dates: start: 20080501

REACTIONS (2)
  - CARPAL TUNNEL SYNDROME [None]
  - LIMB INJURY [None]
